FAERS Safety Report 7675731-0 (Version None)
Quarter: 2011Q3

REPORT INFORMATION
  Report Type: 
  Country: None (occurrence: None)
  Receive Date: 20110810
  Receipt Date: 20110730
  Transmission Date: 20111222
  Serious: Yes (Hospitalization)
  Sender: FDA-Public Use
  Company Number: US-CELGENEUS-163-20785-11080149

PATIENT
  Age: 69 Year
  Sex: Male
  Weight: 83.6 kg

DRUGS (6)
  1. THALOMID [Suspect]
     Indication: MULTIPLE MYELOMA
     Dosage: 100 MILLIGRAM
     Route: 048
     Dates: start: 20100518
  2. THALOMID [Suspect]
     Dosage: 100 MILLIGRAM
     Route: 048
     Dates: start: 20110413, end: 20110511
  3. MELPHALAN HYDROCHLORIDE [Suspect]
     Indication: MULTIPLE MYELOMA
     Dosage: 9 MILLIGRAM/SQ. METER
     Route: 048
     Dates: start: 20100518, end: 20110121
  4. PREDNISONE [Suspect]
     Dosage: 100 MILLIGRAM
     Route: 048
     Dates: start: 20110413, end: 20110416
  5. ASPIRIN [Concomitant]
     Dosage: 325 MILLIGRAM
  6. PREDNISONE [Suspect]
     Indication: MULTIPLE MYELOMA
     Dosage: 100 MILLIGRAM
     Route: 048
     Dates: start: 20100518

REACTIONS (7)
  - BLOOD CREATININE INCREASED [None]
  - HAEMATURIA [None]
  - URINARY RETENTION [None]
  - HYPERKALAEMIA [None]
  - HYPOCALCAEMIA [None]
  - BLADDER PERFORATION [None]
  - ANAEMIA [None]
